FAERS Safety Report 5733630-5 (Version None)
Quarter: 2008Q2

REPORT INFORMATION
  Report Type: 
  Country: None (occurrence: None)
  Receive Date: 20080509
  Receipt Date: 20060918
  Transmission Date: 20081010
  Serious: Yes (Hospitalization, Other)
  Sender: FDA-Public Use
  Company Number: DE-PFIZER INC-2006000029

PATIENT
  Sex: Male
  Weight: 76 kg

DRUGS (8)
  1. SU-011,248 [Suspect]
     Indication: METASTATIC RENAL CELL CARCINOMA
     Route: 048
  2. METOPROLOL TARTRATE [Suspect]
     Route: 048
  3. FLUVASTATIN [Concomitant]
     Route: 048
  4. ASPIRIN [Concomitant]
     Route: 048
  5. FOSAMAX [Concomitant]
     Route: 048
  6. BELOC [Concomitant]
     Route: 048
  7. METOPROLOL SUCCINATE [Concomitant]
     Route: 048
     Dates: start: 20000101
  8. METAMIZOLE [Concomitant]
     Route: 048
     Dates: start: 20000101

REACTIONS (1)
  - VERTIGO [None]
